FAERS Safety Report 4761081-9 (Version None)
Quarter: 2005Q3

REPORT INFORMATION
  Report Type: 
  Country: None (occurrence: None)
  Receive Date: 20050901
  Receipt Date: 20050823
  Transmission Date: 20060218
  Serious: Yes (Hospitalization, Other)
  Sender: FDA-Public Use
  Company Number: 2005113806

PATIENT
  Age: 75 Year
  Sex: Female
  Weight: 44 kg

DRUGS (11)
  1. PEGAPTANIB SODIUM (PEGAPTANIB SODIUM) [Suspect]
     Indication: MACULAR DEGENERATION
     Dosage: (1 IN 6 WK), INTRAVITREOUS
     Route: 042
     Dates: start: 20050616, end: 20050728
  2. REBAMIPIDE (REBAMIPIDE) [Concomitant]
  3. VALSARTAN [Concomitant]
  4. MAGNESIUM OXIDE (MAGNESIUM OXIDE) [Concomitant]
  5. ALFACALCIDOL (ALFACALCIDOL) [Concomitant]
  6. AMBROXOL HYDROCHLORIDE (AMBROXOL HYDROCHLORIDE) [Concomitant]
  7. ATORVASTATIN CALCIUM [Concomitant]
  8. THEOPHYLLINE [Concomitant]
  9. PROBENECID [Concomitant]
  10. OXITROPIUM BROMIDE (OXITROPIUM BROMIDE) [Concomitant]
  11. EPRAZINONE HYDROCHLORIDE (EPRAZINONE HYDROCHLORIDE) [Concomitant]

REACTIONS (4)
  - COUGH [None]
  - NASOPHARYNGITIS [None]
  - RETINAL HAEMORRHAGE [None]
  - VISUAL ACUITY REDUCED [None]
